FAERS Safety Report 22663632 (Version 2)
Quarter: 2024Q1

REPORT INFORMATION
  Report Type: Other
  Country: CA (occurrence: CA)
  Receive Date: 20230703
  Receipt Date: 20240130
  Transmission Date: 20240410
  Serious: Yes (Hospitalization, Other)
  Sender: FDA-Public Use
  Company Number: CA-002147023-NVSC2021CA094824

PATIENT
  Age: 38 Year
  Sex: Female

DRUGS (11)
  1. XOLAIR [Suspect]
     Active Substance: OMALIZUMAB
     Indication: Chronic spontaneous urticaria
     Dosage: 300 MG, EVERY 4 WEEKS, BENEATH THE SKIN, USUALLY VIA INJECTION
     Route: 058
     Dates: start: 20200401
  2. XOLAIR [Suspect]
     Active Substance: OMALIZUMAB
     Dosage: UNK
     Route: 065
     Dates: start: 20210526
  3. XOLAIR [Suspect]
     Active Substance: OMALIZUMAB
     Route: 058
  4. XOLAIR [Suspect]
     Active Substance: OMALIZUMAB
     Dosage: POWDER AND SOLVENT FOR SOLUTION FOR INJECTION
     Route: 058
  5. XOLAIR [Suspect]
     Active Substance: OMALIZUMAB
     Route: 058
  6. XOLAIR [Suspect]
     Active Substance: OMALIZUMAB
     Route: 058
  7. SINGULAIR [Concomitant]
     Active Substance: MONTELUKAST SODIUM
     Indication: Product used for unknown indication
     Dosage: 1 DOSAGE FORM, QD
     Dates: start: 20190624
  8. BILASTINE [Concomitant]
     Active Substance: BILASTINE
     Indication: Product used for unknown indication
     Dosage: 2 DOSAGE FORM, QD
     Dates: start: 20190610
  9. ZANTAC [Concomitant]
     Active Substance: RANITIDINE HYDROCHLORIDE
     Indication: Product used for unknown indication
     Dosage: 2 DOSAGE FORM, QD
     Dates: start: 201904
  10. HYDROMORPHONE [Concomitant]
     Active Substance: HYDROMORPHONE
     Indication: Product used for unknown indication
     Dosage: UNK, PRN
     Dates: start: 201903
  11. ESCITALOPRAM [Concomitant]
     Active Substance: ESCITALOPRAM OXALATE
     Indication: Product used for unknown indication
     Dosage: 1 DOSAGE FORM, QD
     Dates: start: 2014

REACTIONS (13)
  - Gastroenteritis viral [Recovering/Resolving]
  - Nephrolithiasis [Recovered/Resolved]
  - Tremor [Unknown]
  - Pyrexia [Unknown]
  - Dizziness [Unknown]
  - Fall [Unknown]
  - Lower limb fracture [Recovering/Resolving]
  - Brain neoplasm [Unknown]
  - Recurrent cancer [Unknown]
  - Bile duct cancer [Not Recovered/Not Resolved]
  - Malaise [Unknown]
  - Chills [Unknown]
  - Migraine [Unknown]

NARRATIVE: CASE EVENT DATE: 20210423
